FAERS Safety Report 14024279 (Version 2)
Quarter: 2017Q4

REPORT INFORMATION
  Report Type: Spontaneous
  Country: LU (occurrence: LU)
  Receive Date: 20170929
  Receipt Date: 20171027
  Transmission Date: 20180321
  Serious: Yes (Hospitalization)
  Sender: FDA-Public Use
  Company Number: PHHY2017LU140874

PATIENT
  Age: 28 Year
  Sex: Male
  Weight: 98 kg

DRUGS (3)
  1. COSENTYX [Suspect]
     Active Substance: SECUKINUMAB
     Indication: NAIL PSORIASIS
     Dosage: 150 MG, QW (LOADING DOSE OF 4 WEEKS)
     Route: 058
     Dates: start: 20170818
  2. COSENTYX [Suspect]
     Active Substance: SECUKINUMAB
     Indication: PSORIASIS
     Dosage: 150 MG, QMO
     Route: 058
     Dates: start: 20170923
  3. COSENTYX [Suspect]
     Active Substance: SECUKINUMAB
     Indication: PSORIATIC ARTHROPATHY
     Dosage: 150 MG, QW (LOADING DOSE OF 4 WEEKS)
     Route: 058
     Dates: start: 20170722

REACTIONS (8)
  - Haemolytic uraemic syndrome [Recovered/Resolved]
  - Diarrhoea [Recovered/Resolved]
  - Normochromic normocytic anaemia [Unknown]
  - Abdominal pain [Unknown]
  - Renal failure [Recovered/Resolved]
  - Food poisoning [Recovered/Resolved]
  - Urticaria [Unknown]
  - Pyrexia [Unknown]

NARRATIVE: CASE EVENT DATE: 201708
